FAERS Safety Report 8617430-4 (Version None)
Quarter: 2012Q3

REPORT INFORMATION
  Report Type: 
  Country: None (occurrence: None)
  Receive Date: 20120824
  Receipt Date: 20120815
  Transmission Date: 20120928
  Serious: No
  Sender: FDA-Public Use
  Company Number: US-ASTRAZENECA-2012SE57918

PATIENT
  Age: 62 Year
  Sex: Female

DRUGS (3)
  1. NEXIUM [Suspect]
     Route: 048
  2. TRAZODONE HYDROCHLORIDE [Concomitant]
  3. XANAX [Concomitant]

REACTIONS (6)
  - ANXIETY [None]
  - INSOMNIA [None]
  - DEPRESSION [None]
  - MALAISE [None]
  - PANIC ATTACK [None]
  - FATIGUE [None]
